FAERS Safety Report 5421788-7 (Version None)
Quarter: 2007Q3

REPORT INFORMATION
  Report Type: 
  Country: None (occurrence: None)
  Receive Date: 20070719
  Receipt Date: 20060906
  Transmission Date: 20080115
  Serious: Yes (Other)
  Sender: FDA-Public Use
  Company Number: PHEH2006US11360

PATIENT
  Sex: Female

DRUGS (1)
  1. LOTENSIN HCT [Suspect]
     Indication: HYPERTENSION
     Dosage: 20 MG BEN/12.5 MG HCT QD
     Dates: start: 20060801

REACTIONS (2)
  - HEADACHE [None]
  - HYPERTENSION [None]
